FAERS Safety Report 24830038 (Version 3)
Quarter: 2025Q1

REPORT INFORMATION
  Report Type: Spontaneous
  Country: IL (occurrence: IL)
  Receive Date: 20250110
  Receipt Date: 20250313
  Transmission Date: 20250408
  Serious: Yes (Hospitalization, Other)
  Sender: REGENERON
  Company Number: IL-BAYER-2025A002960

PATIENT
  Age: 80 Year
  Sex: Female

DRUGS (2)
  1. EYLEA [Suspect]
     Active Substance: AFLIBERCEPT
     Indication: Neovascular age-related macular degeneration
     Route: 031
     Dates: start: 20241229, end: 20241229
  2. UNSPECIFIED INGREDIENT [Concomitant]
     Active Substance: UNSPECIFIED INGREDIENT
     Indication: Product used for unknown indication

REACTIONS (3)
  - Blindness [Unknown]
  - Bacterial endophthalmitis [Unknown]
  - Eye pain [Recovering/Resolving]

NARRATIVE: CASE EVENT DATE: 20241230
